FAERS Safety Report 25494729 (Version 1)
Quarter: 2025Q2

REPORT INFORMATION
  Report Type: Spontaneous
  Country: US (occurrence: US)
  Receive Date: 20250630
  Receipt Date: 20250630
  Transmission Date: 20250716
  Serious: No
  Sender: CB FLEET
  Company Number: US-PRESTIGE-202503-US-000942

PATIENT
  Sex: Female

DRUGS (1)
  1. NIX COMPLETE MAXIMUM STRENGTH LICE ELIMINATION [Suspect]
     Active Substance: PERMETHRIN
     Indication: Prophylaxis
     Route: 061

REACTIONS (2)
  - Hypersensitivity [Not Recovered/Not Resolved]
  - Product use in unapproved indication [None]
